FAERS Safety Report 5097174-9 (Version None)
Quarter: 2006Q3

REPORT INFORMATION
  Report Type: 
  Country: None (occurrence: None)
  Receive Date: 20060906
  Receipt Date: 20060720
  Transmission Date: 20061208
  Serious: Yes (Other)
  Sender: FDA-Public Use
  Company Number: PHEH2006US09334

PATIENT
  Sex: Female

DRUGS (7)
  1. DIOVAN [Suspect]
     Indication: HYPERTENSION
     Dosage: 320 MG, QD
     Route: 048
  2. DIOVAN [Suspect]
     Route: 048
  3. DIOVAN HCT [Suspect]
     Indication: HYPERTENSION
     Dosage: 160MG VAL/25MG HCT, QD
     Dates: start: 20051101
  4. MAXZIDE [Concomitant]
     Indication: HYPERTENSION
     Dosage: 25 MG, QD
  5. COUMADIN [Concomitant]
     Dosage: 2.5 MG, UNK
  6. TENORMIN [Concomitant]
     Dosage: 100 MG, QD
  7. LIPITOR [Concomitant]
     Dosage: 20 MG, QD

REACTIONS (2)
  - AGEUSIA [None]
  - ANOSMIA [None]
